FAERS Safety Report 6677217-9 (Version None)
Quarter: 2010Q2

REPORT INFORMATION
  Report Type: 
  Country: None (occurrence: None)
  Receive Date: 20100402
  Receipt Date: 20090702
  Transmission Date: 20101027
  Serious: No
  Sender: FDA-Public Use
  Company Number: 2009-00472

PATIENT
  Age: 61 Year
  Sex: Male
  Weight: 129.2752 kg

DRUGS (2)
  1. ZICAM COLD REMEDY NASAL GEL [Suspect]
     Dosage: 9 MONTHS
     Dates: start: 20080901, end: 20090601
  2. COUMADIN [Concomitant]

REACTIONS (1)
  - ANOSMIA [None]
